FAERS Safety Report 7688633-0 (Version None)
Quarter: 2011Q3

REPORT INFORMATION
  Report Type: 
  Country: None (occurrence: None)
  Receive Date: 20110817
  Receipt Date: 20110808
  Transmission Date: 20111222
  Serious: Yes (Hospitalization)
  Sender: FDA-Public Use
  Company Number: US-GILEAD-2011-0042734

PATIENT
  Age: 57 Year
  Sex: Male

DRUGS (7)
  1. ATRIPLA [Suspect]
     Indication: HIV INFECTION
     Route: 048
  2. MORPHINE [Concomitant]
  3. LOPINAVIR [Concomitant]
  4. PHENYTOIN [Concomitant]
  5. BACLOFEN [Concomitant]
  6. ATIVAN [Concomitant]
  7. RANITIDINE [Concomitant]

REACTIONS (3)
  - DECUBITUS ULCER [None]
  - LUNG INFECTION [None]
  - MENTAL STATUS CHANGES [None]
